FAERS Safety Report 9782493 (Version 2)
Quarter: 2014Q2

REPORT INFORMATION
  Report Type: Spontaneous
  Country: FR (occurrence: None)
  Receive Date: 20131220
  Receipt Date: 20140408
  Transmission Date: 20141212
  Serious: Yes (Hospitalization)
  Sender: FDA-Public Use
  Company Number: SYM-2013-13977

PATIENT
  Age: 93 Year
  Sex: Female

DRUGS (3)
  1. FLAGYL (METRONIDAZOLE) (METRONIDAZOLE) [Suspect]
     Indication: CHOLANGIOLITIS
     Route: 042
     Dates: start: 20131109, end: 20131109
  2. ROCEPHINE [Suspect]
     Indication: CHOLANGIOLITIS
     Route: 042
     Dates: start: 20131109, end: 20131109
  3. IOMERON [Suspect]
     Indication: PRODUCT USED FOR UNKNOWN INDICATION
     Route: 042
     Dates: start: 20131108, end: 20131108

REACTIONS (1)
  - Acute generalised exanthematous pustulosis [None]
